FAERS Safety Report 6121627-5 (Version None)
Quarter: 2009Q1

REPORT INFORMATION
  Report Type: 
  Country: None (occurrence: None)
  Receive Date: 20090317
  Receipt Date: 20090311
  Transmission Date: 20090719
  Serious: Yes (Hospitalization, Other)
  Sender: FDA-Public Use
  Company Number: PHHY2008JP32092

PATIENT
  Sex: Male
  Weight: 70 kg

DRUGS (3)
  1. DIOVAN [Suspect]
     Indication: HYPERTENSION
     Dosage: 40 MG, QD
     Route: 048
     Dates: start: 20070803, end: 20080201
  2. HARNAL [Concomitant]
     Dosage: 0.2 MG
     Route: 048
     Dates: start: 20060323, end: 20080201
  3. BUFFERIN [Concomitant]
     Dosage: 100 MG
     Route: 048
     Dates: start: 20050301, end: 20080201

REACTIONS (2)
  - MALLORY-WEISS SYNDROME [None]
  - UPPER GASTROINTESTINAL HAEMORRHAGE [None]
